FAERS Safety Report 5914768-6 (Version None)
Quarter: 2008Q4

REPORT INFORMATION
  Report Type: 
  Country: None (occurrence: None)
  Receive Date: 20081010
  Receipt Date: 20081008
  Transmission Date: 20090506
  Serious: Yes (Hospitalization)
  Sender: FDA-Public Use
  Company Number: US-BRISTOL-MYERS SQUIBB COMPANY-14337885

PATIENT
  Age: 64 Year
  Sex: Male

DRUGS (7)
  1. BMS663513 [Suspect]
     Indication: MALIGNANT MELANOMA
     Dosage: START DATE 15MAY08
     Route: 042
     Dates: start: 20080717, end: 20080717
  2. CARBOPLATIN [Suspect]
     Indication: MALIGNANT MELANOMA
  3. PACLITAXEL [Suspect]
     Indication: MALIGNANT MELANOMA
  4. RADIOTHERAPY [Suspect]
     Indication: METASTASIS
     Dates: end: 20080819
  5. FENTANYL TRANSDERMAL SYSTEM [Concomitant]
  6. COREG [Concomitant]
  7. HYDROCODONE WITH TYLENOL [Concomitant]

REACTIONS (4)
  - ANAEMIA [None]
  - FEBRILE NEUTROPENIA [None]
  - OESOPHAGITIS [None]
  - THROMBOCYTOPENIA [None]
